FAERS Safety Report 17243076 (Version 1)
Quarter: 2020Q1

REPORT INFORMATION
  Report Type: Spontaneous
  Country: FR (occurrence: FR)
  Receive Date: 20200107
  Receipt Date: 20200107
  Transmission Date: 20200409
  Serious: Yes (Other)
  Sender: FDA-Public Use
  Company Number: FR-TEVA-2020-FR-1163433

PATIENT
  Age: 64 Year
  Sex: Female

DRUGS (15)
  1. ANSATIPINE 150 MG, G?LULE [Interacting]
     Active Substance: RIFABUTIN
     Indication: ATYPICAL MYCOBACTERIAL INFECTION
     Dosage: 300 MG
     Route: 048
     Dates: start: 20190529, end: 20191127
  2. CLARITHROMYCIN. [Suspect]
     Active Substance: CLARITHROMYCIN
     Indication: ATYPICAL MYCOBACTERIAL INFECTION
     Dosage: 1000 MG
     Route: 048
     Dates: start: 20190529
  3. MIRCERA [Concomitant]
     Active Substance: METHOXY POLYETHYLENE GLYCOL-EPOETIN BETA
  4. RANITIDINE (CHLORHYDRATE DE) [Concomitant]
     Active Substance: RANITIDINE HYDROCHLORIDE
  5. GALVUS 50 MG, COMPRIM? [Concomitant]
     Active Substance: VILDAGLIPTIN
  6. KARDEGIC [Concomitant]
     Active Substance: ASPIRIN DL-LYSINE
  7. TAHOR [Concomitant]
     Active Substance: ATORVASTATIN CALCIUM
  8. APIDRA [Concomitant]
     Active Substance: INSULIN GLULISINE
  9. DEXAMBUTOL [Suspect]
     Active Substance: ETHAMBUTOL HYDROCHLORIDE
     Indication: ATYPICAL MYCOBACTERIAL INFECTION
     Dosage: 500 MG
     Route: 048
     Dates: start: 20190529
  10. BISOCE [Concomitant]
     Active Substance: BISOPROLOL
  11. CORTANCYL [Suspect]
     Active Substance: PREDNISONE
     Indication: PRODUCT USED FOR UNKNOWN INDICATION
     Dosage: 10 MG
     Route: 048
  12. ZYPREXA [Concomitant]
     Active Substance: OLANZAPINE
  13. ENVARSUS XR [Concomitant]
     Active Substance: TACROLIMUS
  14. AMLOR [Concomitant]
     Active Substance: AMLODIPINE BESYLATE
  15. LASILIX [Concomitant]
     Active Substance: FUROSEMIDE

REACTIONS (2)
  - Drug interaction [Unknown]
  - Uveitis [Recovering/Resolving]

NARRATIVE: CASE EVENT DATE: 20191023
